FAERS Safety Report 7530549 (Version 2)
Quarter: 2020Q3

REPORT INFORMATION
  Report Type: Report from Study
  Country: BR (occurrence: BR)
  Receive Date: 20100806
  Receipt Date: 20100825
  Transmission Date: 20201104
  Serious: Yes (Hospitalization)
  Sender: FDA-Public Use
  Company Number: BR-WYE-H16179510

PATIENT
  Age: 54 Year
  Sex: Male
  Weight: 59 kg

DRUGS (5)
  1. TRAMADOL HYDROCHLORIDE. [Concomitant]
     Active Substance: TRAMADOL HYDROCHLORIDE
     Indication: PAIN
     Dosage: UNKNOWN
     Dates: start: 20100623
  2. CODEINE PHOSPHATE [Concomitant]
     Active Substance: CODEINE PHOSPHATE
     Dosage: UNKNOWN
     Dates: start: 201007
  3. INTERFERON ALFA NOS [Suspect]
     Active Substance: INTERFERON ALFA-2A OR INTERFERON ALFA-2B
     Indication: RENAL CANCER
     Dosage: 3 MU THREE TIMES WEEKLY
     Route: 058
     Dates: start: 20091030, end: 20100709
  4. TYLEX [ACETAMINOPHEN\CARBINOXAMINE MALEATE\PHENYLEPHRINE HYDROCHLORIDE] [Concomitant]
     Active Substance: ACETAMINOPHEN\CARBINOXAMINE MALEATE\PHENYLEPHRINE HYDROCHLORIDE
     Indication: PAIN
     Dosage: UNKNOWN
     Dates: start: 20091015
  5. BEVACIZUMAB. [Suspect]
     Active Substance: BEVACIZUMAB
     Indication: RENAL CANCER
     Route: 042
     Dates: start: 20091030, end: 20100709

REACTIONS (2)
  - Anaemia [Recovered/Resolved]
  - Dyspnoea [Recovered/Resolved]

NARRATIVE: CASE EVENT DATE: 20100709
